FAERS Safety Report 17943347 (Version 3)
Quarter: 2023Q1

REPORT INFORMATION
  Report Type: Spontaneous
  Country: US (occurrence: US)
  Receive Date: 20200625
  Receipt Date: 20230127
  Transmission Date: 20230418
  Serious: Yes (Other)
  Sender: FDA-Public Use
  Company Number: US-PFIZER INC-2020245017

PATIENT
  Age: 71 Year
  Sex: Female

DRUGS (2)
  1. IBRANCE [Suspect]
     Active Substance: PALBOCICLIB
     Dosage: 100 MG
  2. IBRANCE [Suspect]
     Active Substance: PALBOCICLIB
     Dosage: 75 MG, 1X/DAY (TAKE ONE TAB BY MOUTH DAILY)
     Route: 048
     Dates: start: 20221123

REACTIONS (4)
  - Leukopenia [Unknown]
  - Off label use [Unknown]
  - Wrong technique in product usage process [Unknown]
  - Dysphagia [Unknown]
